FAERS Safety Report 14706203 (Version 3)
Quarter: 2018Q2

REPORT INFORMATION
  Report Type: Spontaneous
  Country: US (occurrence: US)
  Receive Date: 20180402
  Receipt Date: 20180416
  Transmission Date: 20180711
  Serious: No
  Sender: FDA-Public Use
  Company Number: US-LUNDBECK-DKLU2046151

PATIENT
  Age: 42 Year
  Sex: Male

DRUGS (3)
  1. LORATIDINE [Concomitant]
     Active Substance: LORATADINE
     Indication: MULTIPLE ALLERGIES
     Dates: start: 201706
  2. NORTHERA [Suspect]
     Active Substance: DROXIDOPA
     Indication: AUTONOMIC NEUROPATHY
     Route: 048
     Dates: start: 20180318, end: 20180319
  3. NORTHERA [Suspect]
     Active Substance: DROXIDOPA
     Indication: ORTHOSTATIC HYPOTENSION
     Route: 048
     Dates: start: 20180320, end: 20180321

REACTIONS (12)
  - Vomiting [Unknown]
  - Malaise [Recovered/Resolved]
  - Pallor [Recovered/Resolved]
  - Nausea [Unknown]
  - Blood pressure fluctuation [Unknown]
  - Headache [Recovered/Resolved]
  - Fatigue [Recovered/Resolved]
  - Dizziness [Unknown]
  - Head discomfort [Unknown]
  - Paraesthesia [Unknown]
  - Blood pressure decreased [Unknown]
  - Chest pain [Recovered/Resolved]

NARRATIVE: CASE EVENT DATE: 20180318
